FAERS Safety Report 7526878-0 (Version None)
Quarter: 2011Q2

REPORT INFORMATION
  Report Type: 
  Country: None (occurrence: None)
  Receive Date: 20110606
  Receipt Date: 20110526
  Transmission Date: 20111010
  Serious: Yes (Other)
  Sender: FDA-Public Use
  Company Number: PHHY2011JP47234

PATIENT
  Age: 3 Year
  Sex: Female

DRUGS (1)
  1. CARBAMAZEPINE [Suspect]
     Indication: EPILEPSY

REACTIONS (5)
  - DRUG ERUPTION [None]
  - BIOTIN DEFICIENCY [None]
  - DERMATITIS [None]
  - RASH [None]
  - CARNITINE DECREASED [None]
